FAERS Safety Report 9412592 (Version 1)
Quarter: 2013Q3

REPORT INFORMATION
  Report Type: Spontaneous
  Country: FR (occurrence: FR)
  Receive Date: 20130722
  Receipt Date: 20130722
  Transmission Date: 20140515
  Serious: Yes (Other)
  Sender: FDA-Public Use
  Company Number: FR-TEVA-419900ISR

PATIENT
  Age: 76 Year
  Sex: Female
  Weight: 75 kg

DRUGS (6)
  1. OXALIPLATINE TEVA [Suspect]
     Indication: LUNG ADENOCARCINOMA
     Dosage: 140 MILLIGRAM DAILY; FOLFOX 4 PROTOCOL
     Route: 041
     Dates: start: 20130409, end: 20130409
  2. FOLINIC ACID [Suspect]
     Indication: LUNG ADENOCARCINOMA
     Dosage: 185 MILLIGRAM DAILY; FOLFOX 4 PROTOCOL
     Route: 041
     Dates: start: 20130409, end: 20130409
  3. FLUOROURACIL [Suspect]
     Indication: LUNG ADENOCARCINOMA
     Dosage: FOLFOX 4 PROTOCOL
     Route: 040
     Dates: start: 20130409, end: 20130409
  4. FLUOROURACIL [Suspect]
     Dosage: FOLFOX 4 PROTOCOL
     Route: 041
     Dates: start: 20130409, end: 20130409
  5. ZOPHREN [Concomitant]
     Dates: start: 20130409
  6. SOLUMEDROL [Concomitant]
     Dosage: 60 MG
     Dates: start: 20130409

REACTIONS (3)
  - Laryngeal discomfort [Recovered/Resolved]
  - Diplopia [Recovered/Resolved]
  - Hypoaesthesia [Recovered/Resolved]
